FAERS Safety Report 9375981 (Version 1)
Quarter: 2013Q2

REPORT INFORMATION
  Report Type: Spontaneous
  Country: US (occurrence: US)
  Receive Date: 20130629
  Receipt Date: 20130629
  Transmission Date: 20140414
  Serious: No
  Sender: FDA-Public Use
  Company Number: US-B.I. PHARMACEUTICALS,INC./RIDGEFIELD-2013-BI-18296BP

PATIENT
  Sex: Female
  Weight: 78 kg

DRUGS (14)
  1. COMBIVENT [Suspect]
     Indication: CHRONIC OBSTRUCTIVE PULMONARY DISEASE
     Dosage: STRENGTH: 18 MCG / 103 MCG; DAILY DOSE: 144 MCG / 824 MCG
     Route: 055
     Dates: start: 2005, end: 20130624
  2. SPIRIVA [Suspect]
     Indication: ASTHMA
     Dosage: 18 MCG
     Route: 055
     Dates: start: 2005
  3. SPIRIVA [Suspect]
     Indication: CHRONIC OBSTRUCTIVE PULMONARY DISEASE
  4. POTASSIUM [Concomitant]
     Dosage: 10 MEQ
     Route: 048
  5. IPRATROPIUM / ALBUTEROL NEBULIZER [Concomitant]
     Indication: CHRONIC OBSTRUCTIVE PULMONARY DISEASE
     Route: 055
  6. ATENOLOL [Concomitant]
     Indication: HYPERTENSION
     Dosage: 37.5 MG
     Route: 048
  7. LOXAPINE [Concomitant]
  8. ZOLOFT [Concomitant]
     Indication: DEPRESSION
     Dosage: 100 MG
     Route: 048
  9. FUROSEMIDE [Concomitant]
     Indication: HYPERTENSION
     Dosage: 20 MG
     Route: 048
  10. DEPAKOTE [Concomitant]
     Dosage: 750 MG
     Route: 048
  11. ALPRAZOLAM [Concomitant]
     Indication: ANXIETY
     Dosage: 1.5 MG
     Route: 048
  12. PROAIR [Concomitant]
     Indication: ASTHMA
     Dosage: 720 MCG
     Route: 055
  13. SYMBICORT [Concomitant]
     Indication: CHRONIC OBSTRUCTIVE PULMONARY DISEASE
     Dosage: STRENGTH: 160/4.5; DAILY DOSE: 640/18
     Route: 055
  14. SIMVASTATIN [Concomitant]
     Indication: BLOOD CHOLESTEROL INCREASED
     Dosage: (TABLET) STRENGTH: 10 MG; DAILY DOSE: 10 MG
     Route: 048

REACTIONS (2)
  - Visual acuity reduced [Not Recovered/Not Resolved]
  - Hypoacusis [Not Recovered/Not Resolved]
